FAERS Safety Report 9767503 (Version 2)
Quarter: 2013Q4

REPORT INFORMATION
  Report Type: Spontaneous
  Country: US (occurrence: US)
  Receive Date: 20131217
  Receipt Date: 20131217
  Transmission Date: 20140711
  Serious: Yes (Other)
  Sender: FDA-Public Use
  Company Number: US-BANPHARM-20131935

PATIENT
  Sex: Female

DRUGS (1)
  1. MIDOL LIQUID GELS 200 MG [Suspect]
     Route: 048

REACTIONS (2)
  - Throat irritation [Unknown]
  - Wrong technique in drug usage process [Unknown]
